FAERS Safety Report 9122054 (Version 1)
Quarter: 2013Q1

REPORT INFORMATION
  Report Type: Spontaneous
  Country: US (occurrence: US)
  Receive Date: 20130114
  Receipt Date: 20130114
  Transmission Date: 20140127
  Serious: Yes (Other)
  Sender: FDA-Public Use
  Company Number: US-RB-048111-13

PATIENT
  Age: 47 Year
  Sex: Female

DRUGS (3)
  1. MUCINEX FAST-MAX SEVERE CONGESTION AND COUGH [Suspect]
     Indication: PRODUCT USED FOR UNKNOWN INDICATION
     Route: 048
     Dates: start: 20121226
  2. MUCINEX FAST-MAX SEVERE CONGESTION AND COUGH [Suspect]
  3. MUCINEX FAST-MAX SEVERE CONGESTION AND COUGH [Suspect]

REACTIONS (6)
  - Asthma [Recovered/Resolved]
  - Palpitations [Recovered/Resolved]
  - Feeling of body temperature change [Recovered/Resolved]
  - Hyperhidrosis [Recovered/Resolved]
  - Insomnia [Recovered/Resolved]
  - Headache [Recovered/Resolved]
